FAERS Safety Report 13609442 (Version 2)
Quarter: 2017Q2

REPORT INFORMATION
  Report Type: Spontaneous
  Country: US (occurrence: US)
  Receive Date: 20170602
  Receipt Date: 20170605
  Transmission Date: 20170830
  Serious: Yes (Other)
  Sender: FDA-Public Use
  Company Number: US-PFIZER INC-2895219

PATIENT
  Age: 55 Year
  Sex: Female
  Weight: 81.82 kg

DRUGS (2)
  1. KETOROLAC TROMETHAMINE. [Suspect]
     Active Substance: KETOROLAC TROMETHAMINE
     Indication: NEURALGIA
     Dosage: R OR L HIP, ONCE
     Route: 030
     Dates: start: 20150327, end: 20150327
  2. ARMOUR THYROID [Concomitant]
     Active Substance: THYROID, PORCINE
     Indication: THYROID DISORDER
     Dosage: 60 MG, DAILY,LONG TIME
     Route: 048

REACTIONS (5)
  - Somnolence [Recovered/Resolved]
  - Injection site pruritus [Recovered/Resolved]
  - Poor quality drug administered [Unknown]
  - Back pain [Recovering/Resolving]
  - Product quality issue [Unknown]

NARRATIVE: CASE EVENT DATE: 20150327
